FAERS Safety Report 5062012-7 (Version None)
Quarter: 2006Q3

REPORT INFORMATION
  Report Type: 
  Country: None (occurrence: None)
  Receive Date: 20060703
  Receipt Date: 20051020
  Transmission Date: 20061208
  Serious: No
  Sender: FDA-Public Use
  Company Number: 2005S1010372

PATIENT
  Age: 61 Year
  Sex: Male
  Weight: 78.4723 kg

DRUGS (8)
  1. CLOZAPINE [Suspect]
     Indication: SCHIZOPHRENIA
     Dosage: 100 MG; BID; PO
     Route: 048
  2. CLONAZEPAM [Concomitant]
  3. VALPROATE SODIUM [Concomitant]
  4. FUROSEMIDE [Concomitant]
  5. GABAPENTIN [Concomitant]
  6. LEVOTHYROXINE SODIUM [Concomitant]
  7. DOCUSATE SODIUM/SENNA [Concomitant]
  8. VITAMINS NOS [Concomitant]

REACTIONS (1)
  - GRANULOCYTOPENIA [None]
